FAERS Safety Report 7670042-1 (Version None)
Quarter: 2011Q3

REPORT INFORMATION
  Report Type: 
  Country: None (occurrence: None)
  Receive Date: 20110808
  Receipt Date: 20110311
  Transmission Date: 20111222
  Serious: No
  Sender: FDA-Public Use
  Company Number: US-BAYER-2011-066861

PATIENT
  Age: 59 Year
  Sex: Female
  Weight: 86 kg

DRUGS (4)
  1. PHILLIPS' LAXATIVE DIETARY SUPPLEMENT [Suspect]
     Indication: CONSTIPATION
     Dosage: 2 CAPLETS ONCE A DAY
     Route: 048
     Dates: start: 20110311, end: 20110311
  2. ACETYLSALICYLIC ACID SRT [Concomitant]
  3. LIPITOR [Concomitant]
  4. UNKNOWN [Concomitant]

REACTIONS (1)
  - CONSTIPATION [None]
